FAERS Safety Report 8559596 (Version 2)
Quarter: 2012Q4

REPORT INFORMATION
  Report Type: 
  Country: ES (occurrence: ES)
  Receive Date: 20120514
  Receipt Date: 20120927
  Transmission Date: 20130627
  Serious: Yes (Other)
  Sender: FDA-Public Use
  Company Number: ES-BRISTOL-MYERS SQUIBB COMPANY-16571416

PATIENT
  Age: 3 Year
  Sex: Female

DRUGS (1)
  1. ABILIFY [Suspect]
     Dates: start: 20120503

REACTIONS (1)
  - Drug administration error [Unknown]
